FAERS Safety Report 7122643-7 (Version None)
Quarter: 2010Q4

REPORT INFORMATION
  Report Type: 
  Country: None (occurrence: None)
  Receive Date: 20101124
  Receipt Date: 20101119
  Transmission Date: 20110411
  Serious: Yes (Death)
  Sender: FDA-Public Use
  Company Number: VE-PFIZER INC-2010142133

PATIENT
  Age: 88 Year
  Sex: Female

DRUGS (2)
  1. ZOLOFT [Suspect]
     Indication: PANIC DISORDER
     Dosage: 50 MG, 1X/DAY
     Route: 048
     Dates: start: 20080101, end: 20100729
  2. ZOLOFT [Suspect]
     Indication: DEPRESSION

REACTIONS (2)
  - INTESTINAL OBSTRUCTION [None]
  - SEPSIS [None]
